FAERS Safety Report 19095239 (Version 4)
Quarter: 2021Q2

REPORT INFORMATION
  Report Type: Spontaneous
  Country: US (occurrence: US)
  Receive Date: 20210405
  Receipt Date: 20210510
  Transmission Date: 20210717
  Serious: No
  Sender: FDA-Public Use
  Company Number: US-AMGEN-USASP2021044682

PATIENT
  Age: 50 Year
  Sex: Female
  Weight: 67.1 kg

DRUGS (2)
  1. NEULASTA [Suspect]
     Active Substance: PEGFILGRASTIM
     Indication: NEUTROPENIA
     Dosage: UNK UNK, CYCLICAL
     Route: 065
     Dates: start: 20210225
  2. NEULASTA [Suspect]
     Active Substance: PEGFILGRASTIM
     Dosage: UNK UNK, CYCLICAL
     Route: 065

REACTIONS (2)
  - White blood cell count decreased [Unknown]
  - Device issue [Unknown]

NARRATIVE: CASE EVENT DATE: 202102
